FAERS Safety Report 9252501 (Version 1)
Quarter: 2013Q1

REPORT INFORMATION
  Report Type: Spontaneous
  Country: US (occurrence: None)
  Receive Date: 20130305
  Receipt Date: 20130305
  Transmission Date: 20140127
  Serious: Yes (Other)
  Sender: FDA-Public Use
  Company Number: 163-21880-12082997

PATIENT
  Age: 78 Year
  Sex: Male
  Weight: 81.65 kg

DRUGS (11)
  1. REVLIMID [Suspect]
     Indication: HISTIOCYTOSIS
     Dosage: 25 MG, 21 IN 21 D, PO
     Dates: start: 20120807, end: 20120824
  2. ALLOPURINOL [Concomitant]
  3. ZOLPIDEM TARTRATE (ZOLPIDEM TARTRATE) [Concomitant]
  4. ZOLOFT (SERTRALINE HYDROCHLORIDE) [Concomitant]
  5. OXYCODONE (OXYCODONE) [Concomitant]
  6. XANAX (ALPRAZOLAM) [Concomitant]
  7. PREDNISONE (PREDNISONE) [Concomitant]
  8. LEVOFLOXACIN (LEVOFLOXACIN) [Concomitant]
  9. DIAZEPAM (DIAZEPAM) [Concomitant]
  10. ZYRTEC (CETIRIZINE HYDROCHLORIDE) [Concomitant]
  11. VITAMIN D (ERGOCALCIFEROL) [Concomitant]

REACTIONS (2)
  - Blood blister [None]
  - Dyspnoea [None]
